FAERS Safety Report 6460047-0 (Version None)
Quarter: 2009Q4

REPORT INFORMATION
  Report Type: 
  Country: None (occurrence: None)
  Receive Date: 20091129
  Receipt Date: 20091120
  Transmission Date: 20100525
  Serious: Yes (Hospitalization)
  Sender: FDA-Public Use
  Company Number: PHHO2009US14461

PATIENT
  Sex: Male
  Weight: 72.9 kg

DRUGS (3)
  1. STI571/CGP57148B T35717+TAB [Suspect]
     Indication: CHRONIC GRAFT VERSUS HOST DISEASE
     Dosage: 300 MG, QD
     Route: 048
     Dates: start: 20090903
  2. FLUCONAZOLE [Concomitant]
  3. ADVAIR DISKUS 100/50 [Concomitant]

REACTIONS (9)
  - ATELECTASIS [None]
  - BRONCHIECTASIS [None]
  - CONDITION AGGRAVATED [None]
  - DYSPNOEA [None]
  - GRAFT VERSUS HOST DISEASE IN LUNG [None]
  - LUNG CONSOLIDATION [None]
  - LUNG INFILTRATION [None]
  - PLEURAL EFFUSION [None]
  - PULMONARY OEDEMA [None]
